FAERS Safety Report 10242048 (Version 1)
Quarter: 2014Q1

REPORT INFORMATION
  Report Type: Spontaneous
  Country: US (occurrence: None)
  Receive Date: 20140306
  Receipt Date: 20140306
  Transmission Date: 20141002
  Serious: Yes (Other)
  Sender: FDA-Public Use
  Company Number: 163-21880-13060600

PATIENT
  Age: 69 Year
  Sex: Female
  Weight: 62.5 kg

DRUGS (30)
  1. REVLIMID (LENALIDOMIDE) (10 MILLIGRAM, CAPSULES) [Suspect]
     Indication: PLASMA CELL MYELOMA
     Dosage: 10 MG, 21 IN 28 D, PO
     Route: 048
     Dates: start: 20121025
  2. ASTEPRO (AZELASTINE HYDROCHLORIDE) (NASAL DROPS (INCLUDING NASAL SPRAY )) [Concomitant]
  3. PILOCARPINE HCL (PILOCARPINE HYDROCHLORIDE) (TABLETS) [Concomitant]
  4. ACYCLOVIR (ACICLOVIR) (TABLETS) [Concomitant]
  5. AMBIEN (ZOLPIDEM TARTRATE) (TABLETS) [Concomitant]
  6. COMPOUND-MAGIC MOUTHWASH (OTHER THERAPUTIC PRODUCTS) (SOLUTION) [Concomitant]
  7. CYMBALTA [Concomitant]
  8. DEXAMETHASONE (DEXAMETHASONE) (TABLETS) [Concomitant]
  9. DULOXETINE HCL (DULOXETINE HYDROCHLORIDE) (SUSTAINED-RELEASE CAPSULE) [Concomitant]
  10. FILGRASTIM (FILGRASTIM) (SOLUTION) [Concomitant]
  11. HEPARIN LOCK FLUSH (HEPARIN SODIUM) (SOLUTION) [Concomitant]
  12. ONDANSETRON HCL (ONDANSETRON HYDROCHLORIDE) (TABLETS) [Concomitant]
  13. PERCOCET (OXYCOCET) (TABLETS) [Concomitant]
  14. PROCHLORPERAZINE MALEATE (PROCHLORPERAZINE MALEATE) (TABLETS) [Concomitant]
  15. ACETAMINOPHEN (PARACETAMOL) (CAPSULES) [Concomitant]
  16. ATIVAN (LORAZEPAM) (TABLETS) [Concomitant]
  17. CALCIUM (CALCIUM) (TABLETS) [Concomitant]
  18. CITALOPRAM HYDROBROMIDE (CITALOPRAM HYDROBROMIDE) (TABLETS) [Concomitant]
  19. LEVOTHROID (LEVOTHYROXINE SODIUM) (TABLETS) [Concomitant]
  20. MULTIVITAMINS (MULTIVITAMINS) (TABLETS) [Concomitant]
  21. OMEPRAZOLE (OMEPRAZOLE) (ENTERIC-COATED TABLET) [Concomitant]
  22. OXYCODONE HCL (OXYCODONE HYDROCHLORIDE) (TABLETS) [Concomitant]
  23. CIPROFLOXACIN HCL (CIPROFLOXACIN HYDROCHLORIDE) [Concomitant]
  24. GLUCOPHAGE (METFORMIN) (TABLETS) [Concomitant]
  25. ZOLEDRONIC ACID (ZOLEDRONIC ACID) (UNKNOWN) [Concomitant]
  26. GARBAPENTIN (GARBAPENTIN) (TABLETS) [Concomitant]
  27. SIMETHICONE (DIMETICONE, ACTIVATED) (TABLETS) [Concomitant]
  28. CHOLECALCIFEROL (COLECALCIFEROL) (UNKNOWN) [Concomitant]
  29. LISINOPRIL (LISINOPRIL) (UNKNOWN) [Concomitant]
  30. LUTEIN (XANTOFYL) (UNKNOWN) [Concomitant]

REACTIONS (9)
  - Laboratory test abnormal [None]
  - Dry mouth [None]
  - Rhinorrhoea [None]
  - Platelet count decreased [None]
  - Full blood count decreased [None]
  - Neutropenia [None]
  - Anaemia [None]
  - Decreased appetite [None]
  - Weight decreased [None]
